FAERS Safety Report 21951668 (Version 1)
Quarter: 2023Q1

REPORT INFORMATION
  Report Type: Spontaneous
  Country: US (occurrence: None)
  Receive Date: 20230203
  Receipt Date: 20230203
  Transmission Date: 20230417
  Serious: Yes (Other)
  Sender: FDA-Public Use
  Company Number: None

PATIENT
  Age: 57 Year
  Sex: Female
  Weight: 65.25 kg

DRUGS (1)
  1. ARTIFICIAL TEARS LUBRICANT EYE DROPS (CARBOXYMETHYLCELLULOSE SODIUM) [Suspect]
     Active Substance: CARBOXYMETHYLCELLULOSE SODIUM
     Indication: Dry eye
     Dosage: OTHER QUANTITY : 1 DROP(S);?FREQUENCY : EVERY 6 HOURS;?
     Route: 047

REACTIONS (10)
  - Swelling of eyelid [None]
  - Erythema of eyelid [None]
  - Photophobia [None]
  - Urinary tract infection [None]
  - Renal disorder [None]
  - Renal pain [None]
  - Micturition urgency [None]
  - Pollakiuria [None]
  - Bladder pain [None]
  - Recalled product administered [None]

NARRATIVE: CASE EVENT DATE: 20220618
